FAERS Safety Report 24455164 (Version 2)
Quarter: 2024Q4

REPORT INFORMATION
  Report Type: Report from Study
  Country: JP (occurrence: JP)
  Receive Date: 20241017
  Receipt Date: 20241018
  Transmission Date: 20250115
  Serious: No
  Sender: ROCHE
  Company Number: JP-ROCHE-3481284

PATIENT
  Age: 44 Year
  Sex: Female
  Weight: 54.0 kg

DRUGS (2)
  1. RITUXAN [Suspect]
     Active Substance: RITUXIMAB
     Indication: Systemic scleroderma
     Dosage: SUBSEQUENT CYCLES: 24/APR/2023, 01/MAY/2023, 08/MAY/2023, 15/MAY/2023, 14/NOV/2023, 21/NOV/2023
     Route: 041
     Dates: start: 20230424, end: 20230424
  2. TACROLIMUS [Concomitant]
     Active Substance: TACROLIMUS
     Indication: Systemic scleroderma
     Dates: start: 20220801, end: 20230423

REACTIONS (1)
  - Infusion related reaction [Recovered/Resolved]

NARRATIVE: CASE EVENT DATE: 20230424
